FAERS Safety Report 9854241 (Version 1)
Quarter: 2014Q1

REPORT INFORMATION
  Report Type: Spontaneous
  Country: FI (occurrence: FI)
  Receive Date: 20140130
  Receipt Date: 20140130
  Transmission Date: 20141002
  Serious: Yes (Hospitalization)
  Sender: FDA-Public Use
  Company Number: FI-ROCHE-1340750

PATIENT
  Age: 24 Year
  Sex: Female

DRUGS (7)
  1. MABTHERA [Suspect]
     Indication: JUVENILE IDIOPATHIC ARTHRITIS
     Route: 042
     Dates: start: 20130124, end: 201302
  2. MABTHERA [Suspect]
     Route: 042
     Dates: start: 201309, end: 20130917
  3. PREDNISOLON [Concomitant]
     Indication: JUVENILE IDIOPATHIC ARTHRITIS
     Route: 048
  4. OXIKLORIN [Concomitant]
     Indication: JUVENILE IDIOPATHIC ARTHRITIS
     Route: 048
  5. NEXIUM [Concomitant]
     Indication: PROPHYLAXIS AGAINST GASTROINTESTINAL ULCER
     Route: 048
  6. PANADOL [Concomitant]
     Route: 048
  7. PANACOD [Concomitant]
     Route: 048

REACTIONS (1)
  - Aplastic anaemia [Not Recovered/Not Resolved]
